FAERS Safety Report 12312409 (Version 1)
Quarter: 2016Q2

REPORT INFORMATION
  Report Type: Spontaneous
  Country: AU (occurrence: AU)
  Receive Date: 20160428
  Receipt Date: 20160428
  Transmission Date: 20160815
  Serious: Yes (Hospitalization)
  Sender: FDA-Public Use
  Company Number: AU-009507513-1604AUS014902

PATIENT

DRUGS (4)
  1. RITONAVIR. [Suspect]
     Active Substance: RITONAVIR
  2. VIEKIRA PAK [Suspect]
     Active Substance: DASABUVIR\OMBITASVIR\PARITAPREVIR\RITONAVIR
  3. FLUTICASONE [Suspect]
     Active Substance: FLUTICASONE\FLUTICASONE PROPIONATE
  4. RIBAVIRIN. [Suspect]
     Active Substance: RIBAVIRIN
     Dosage: UNK
     Route: 048
     Dates: start: 20151017

REACTIONS (7)
  - Dyspnoea exertional [Unknown]
  - Cortisol free urine decreased [Unknown]
  - Lethargy [Unknown]
  - Blood cortisol decreased [Unknown]
  - Adrenal suppression [Unknown]
  - Cushing^s syndrome [Unknown]
  - Feeling jittery [Unknown]

NARRATIVE: CASE EVENT DATE: 201512
